FAERS Safety Report 21431354 (Version 1)
Quarter: 2022Q4

REPORT INFORMATION
  Report Type: Spontaneous
  Country: TN (occurrence: TN)
  Receive Date: 20221009
  Receipt Date: 20221009
  Transmission Date: 20230113
  Serious: Yes (Other)
  Sender: FDA-Public Use
  Company Number: TN-BEH-2022150412

PATIENT
  Age: 57 Year
  Sex: Male

DRUGS (1)
  1. HUMAN IMMUNOGLOBULIN G [Suspect]
     Active Substance: HUMAN IMMUNOGLOBULIN G
     Indication: Miller Fisher syndrome
     Dosage: 400 MILLIGRAM/KILOGRAM
     Route: 042

REACTIONS (3)
  - Herpes zoster reactivation [Recovered/Resolved]
  - Drug ineffective [Recovered/Resolved]
  - Immunosuppression [Recovered/Resolved]
